FAERS Safety Report 4727041-9 (Version None)
Quarter: 2005Q3

REPORT INFORMATION
  Report Type: 
  Country: None (occurrence: None)
  Receive Date: 20050726
  Receipt Date: 20050720
  Transmission Date: 20060218
  Serious: Yes (Hospitalization)
  Sender: FDA-Public Use
  Company Number: 002#4#2005-00227

PATIENT
  Age: 80 Year
  Sex: Male

DRUGS (17)
  1. REGLAN [Suspect]
     Indication: HICCUPS
     Dosage: ORAL
     Route: 048
     Dates: start: 20050614, end: 20050624
  2. LORAZEPAM [Suspect]
     Indication: MUSCLE SPASMS
     Dosage: ORAL
     Route: 048
     Dates: start: 20050614, end: 20050624
  3. ONDANSETRON [Concomitant]
  4. PANCRELIPASE [Concomitant]
  5. EPOGEN [Concomitant]
  6. DOCUSATE SODIUM [Concomitant]
  7. RANITIDINE [Concomitant]
  8. GLUCOSAMINE/CHONDROITINE [Concomitant]
  9. LEVOFLOXACIN [Concomitant]
  10. SERTRALINE HCL [Concomitant]
  11. GEMCITABINE [Concomitant]
  12. MEGESTROL [Concomitant]
  13. ATENOLOL [Concomitant]
  14. SIMVASTATIN [Concomitant]
  15. METFORMIN [Concomitant]
  16. ASPIRIN [Concomitant]
  17. DEXAMETHASONE [Concomitant]

REACTIONS (7)
  - ALANINE AMINOTRANSFERASE INCREASED [None]
  - ASPARTATE AMINOTRANSFERASE INCREASED [None]
  - BLOOD ALKALINE PHOSPHATASE INCREASED [None]
  - CEREBRAL ATROPHY [None]
  - CEREBRAL ISCHAEMIA [None]
  - CONFUSIONAL STATE [None]
  - DYSARTHRIA [None]
